FAERS Safety Report 9334499 (Version 1)
Quarter: 2013Q2

REPORT INFORMATION
  Report Type: Spontaneous
  Country: US (occurrence: US)
  Receive Date: 20130606
  Receipt Date: 20130606
  Transmission Date: 20140414
  Serious: No
  Sender: FDA-Public Use
  Company Number: US-AMGEN-USASP2013032320

PATIENT
  Age: 75 Year
  Sex: Female

DRUGS (8)
  1. PROLIA [Suspect]
     Indication: OSTEOPOROSIS POSTMENOPAUSAL
     Dosage: UNK
     Dates: start: 201303
  2. RESTORIL                           /00054301/ [Concomitant]
  3. CELEBREX [Concomitant]
     Dosage: 200 MG, BID
  4. LEVOTHYROXINE [Concomitant]
     Dosage: 25 MUG, QD
  5. AMITRIPTYLINE [Concomitant]
     Dosage: 25 MG, QD
  6. ZOCOR [Concomitant]
     Dosage: 200 MG, QD
  7. VITAMINS /90003601/ [Concomitant]
  8. MAXIDENE [Concomitant]
     Dosage: 25 MG, QD

REACTIONS (1)
  - Headache [Unknown]
